FAERS Safety Report 6023709-5 (Version None)
Quarter: 2008Q4

REPORT INFORMATION
  Report Type: 
  Country: None (occurrence: None)
  Receive Date: 20081226
  Receipt Date: 20081226
  Transmission Date: 20090506
  Serious: No
  Sender: FDA-Public Use
  Company Number: None

PATIENT
  Age: 64 Year
  Sex: Male
  Weight: 78.0187 kg

DRUGS (2)
  1. NALOXONE HYDROCHLORIDE AND PENTAZOCAINE [Suspect]
     Indication: PAIN
     Dosage: ONE TABLET FOUR TIMES A DAY PO
     Route: 048
  2. TALWIN NX [Suspect]

REACTIONS (2)
  - DRUG EFFECT DECREASED [None]
  - THERAPEUTIC RESPONSE UNEXPECTED WITH DRUG SUBSTITUTION [None]
